FAERS Safety Report 18040157 (Version 2)
Quarter: 2020Q3

REPORT INFORMATION
  Report Type: Spontaneous
  Country: US (occurrence: US)
  Receive Date: 20200717
  Receipt Date: 20200717
  Transmission Date: 20201103
  Serious: Yes (Other)
  Sender: FDA-Public Use
  Company Number: US-GLAXOSMITHKLINE-US2020121686

PATIENT
  Age: 58 Year

DRUGS (2)
  1. ZANTAC [Suspect]
     Active Substance: RANITIDINE HYDROCHLORIDE
     Dosage: UNK
     Route: 065
  2. RANITIDINE HYDROCHLORIDE. [Suspect]
     Active Substance: RANITIDINE HYDROCHLORIDE
     Dosage: UNK
     Route: 065

REACTIONS (6)
  - Renal cancer [Unknown]
  - Cardiac neoplasm malignant [Unknown]
  - Hepatic cancer [Unknown]
  - Mesothelioma [Unknown]
  - Brain neoplasm malignant [Unknown]
  - Lung neoplasm malignant [Unknown]
